APPROVED DRUG PRODUCT: BRETYLIUM TOSYLATE
Active Ingredient: BRETYLIUM TOSYLATE
Strength: 50MG/ML **Federal Register determination that product was not discontinued or withdrawn for safety or effectiveness reasons**
Dosage Form/Route: INJECTABLE;INJECTION
Application: N019030 | Product #001
Applicant: HOSPIRA WORLDWIDE, INC
Approved: Apr 29, 1986 | RLD: Yes | RS: No | Type: DISCN